FAERS Safety Report 8885065 (Version 1)
Quarter: 2012Q4

REPORT INFORMATION
  Report Type: 
  Country: US (occurrence: US)
  Receive Date: 20121102
  Receipt Date: 20121102
  Transmission Date: 20130627
  Serious: No
  Sender: FDA-Public Use
  Company Number: US-PFIZER INC-2012272958

PATIENT
  Age: 53 Year
  Sex: Female
  Weight: 84.81 kg

DRUGS (6)
  1. NEURONTIN [Suspect]
     Indication: NERVE DAMAGE
     Dosage: 800 mg, 3x/day
     Route: 048
     Dates: end: 201207
  2. METFORMIN [Concomitant]
     Indication: DIABETES
     Dosage: UNK
  3. VYTORIN [Concomitant]
     Indication: HIGH CHOLESTEROL
     Dosage: UNK
  4. NEXIUM [Concomitant]
     Indication: ACID REFLUX (ESOPHAGEAL)
     Dosage: UNK
  5. PERCOCET [Concomitant]
     Indication: PAIN
     Dosage: UNK
  6. TRAZODONE [Concomitant]
     Indication: SLEEP PROBLEM
     Dosage: UNK

REACTIONS (3)
  - Peripheral coldness [Recovering/Resolving]
  - Paraesthesia [Recovering/Resolving]
  - Drug ineffective [Unknown]
